FAERS Safety Report 25789404 (Version 1)
Quarter: 2025Q3

REPORT INFORMATION
  Report Type: Spontaneous
  Country: US (occurrence: US)
  Receive Date: 20250911
  Receipt Date: 20250911
  Transmission Date: 20251021
  Serious: No
  Sender: ENDO
  Company Number: US-ENDO USA, INC.-2025-001750

PATIENT
  Sex: Female

DRUGS (4)
  1. THEO-24 [Suspect]
     Active Substance: THEOPHYLLINE ANHYDROUS
     Indication: Diaphragmatic paralysis
     Dosage: 400 MILLIGRAM, BID
     Route: 065
     Dates: start: 2025, end: 2025
  2. THEO-24 [Suspect]
     Active Substance: THEOPHYLLINE ANHYDROUS
     Route: 065
     Dates: start: 2025, end: 202507
  3. THEO-24 [Suspect]
     Active Substance: THEOPHYLLINE ANHYDROUS
     Route: 065
     Dates: start: 2025, end: 202507
  4. THEOPHYLLINE [Concomitant]
     Active Substance: THEOPHYLLINE
     Indication: Diaphragmatic paralysis
     Dosage: 400 MILLIGRAM, BID (FOR SEVERAL MONTHS)
     Route: 065
     Dates: end: 2025

REACTIONS (3)
  - Blood test abnormal [Unknown]
  - Off label use [Recovered/Resolved]
  - Product substitution issue [Recovered/Resolved]

NARRATIVE: CASE EVENT DATE: 20250101
